FAERS Safety Report 5029961-7 (Version None)
Quarter: 2006Q2

REPORT INFORMATION
  Report Type: 
  Country: None (occurrence: None)
  Receive Date: 20060620
  Receipt Date: 20060419
  Transmission Date: 20061013
  Serious: Yes (Hospitalization)
  Sender: FDA-Public Use
  Company Number: JP-MERCK-0604USA03339

PATIENT
  Age: 55 Year
  Sex: Female
  Weight: 60 kg

DRUGS (11)
  1. GASTER [Concomitant]
     Indication: PROPHYLAXIS AGAINST GASTROINTESTINAL ULCER
     Route: 048
     Dates: start: 20060301, end: 20060320
  2. FOSAMAX [Suspect]
     Indication: OSTEOPOROSIS PROPHYLAXIS
     Route: 048
     Dates: start: 20060301, end: 20060320
  3. FOSAMAX [Suspect]
     Route: 048
     Dates: start: 20060210, end: 20060228
  4. FAMOTIDINE [Concomitant]
     Indication: PROPHYLAXIS AGAINST GASTROINTESTINAL ULCER
     Route: 048
     Dates: start: 20060210, end: 20060228
  5. MUCOSTA [Concomitant]
     Indication: PROPHYLAXIS AGAINST GASTROINTESTINAL ULCER
     Route: 048
     Dates: start: 20060228, end: 20060320
  6. SOLU-MEDROL [Concomitant]
     Indication: OPTIC NEURITIS
     Route: 042
     Dates: start: 20060301, end: 20060303
  7. SOLU-MEDROL [Concomitant]
     Route: 042
     Dates: start: 20060310, end: 20060312
  8. SOLU-MEDROL [Concomitant]
     Route: 042
     Dates: start: 20060210, end: 20060212
  9. PREDNISOLONE [Concomitant]
     Indication: OPTIC NEURITIS
     Route: 048
     Dates: start: 20060304, end: 20060309
  10. PREDNISOLONE [Concomitant]
     Route: 048
     Dates: start: 20060313, end: 20060320
  11. PREDNISOLONE [Concomitant]
     Route: 048
     Dates: start: 20060321, end: 20060404

REACTIONS (6)
  - ALANINE AMINOTRANSFERASE INCREASED [None]
  - ASPARTATE AMINOTRANSFERASE INCREASED [None]
  - BLOOD ALKALINE PHOSPHATASE INCREASED [None]
  - BLOOD LACTATE DEHYDROGENASE INCREASED [None]
  - HEPATIC FUNCTION ABNORMAL [None]
  - VISUAL ACUITY REDUCED [None]
